FAERS Safety Report 25098834 (Version 1)
Quarter: 2025Q1

REPORT INFORMATION
  Report Type: Spontaneous
  Country: IT (occurrence: IT)
  Receive Date: 20250320
  Receipt Date: 20250320
  Transmission Date: 20250409
  Serious: Yes (Hospitalization, Other)
  Sender: NOVITIUM PHARMA
  Company Number: IT-NOVITIUMPHARMA-2025ITNVP00673

PATIENT
  Age: 85 Year
  Sex: Female

DRUGS (5)
  1. PREDNISONE [Suspect]
     Active Substance: PREDNISONE
     Indication: Necrotising retinitis
     Route: 048
  2. DEXAMETHASONE [Suspect]
     Active Substance: DEXAMETHASONE
     Indication: Necrotising retinitis
     Dosage: IN RIGHT EYE (OD)
     Route: 061
  3. LETROZOLE [Concomitant]
     Active Substance: LETROZOLE
     Indication: Breast cancer
  4. ACYCLOVIR [Concomitant]
     Active Substance: ACYCLOVIR
     Indication: Necrotising retinitis
  5. COTRIMOXAZOLE [Concomitant]
     Active Substance: SULFAMETHOXAZOLE\TRIMETHOPRIM
     Indication: Necrotising retinitis

REACTIONS (1)
  - Toxoplasmosis [Unknown]
